FAERS Safety Report 4404437-6 (Version None)
Quarter: 2004Q3

REPORT INFORMATION
  Report Type: 
  Country: None (occurrence: None)
  Receive Date: 20040720
  Receipt Date: 20040707
  Transmission Date: 20050211
  Serious: Yes (Other)
  Sender: FDA-Public Use
  Company Number: 2004045302

PATIENT
  Age: 81 Year
  Sex: Female
  Weight: 57.6068 kg

DRUGS (4)
  1. PROCARDIA XL [Suspect]
     Indication: HYPERTENSION
     Dosage: 30 MG (30 MG, 1 IN 1 D)
     Dates: start: 19890101
  2. PANTOPRAZOLE (PANTOPRAZOLE) [Suspect]
     Indication: ILL-DEFINED DISORDER
     Dates: start: 20040101
  3. CIPROFLOXACIN [Suspect]
     Indication: ILL-DEFINED DISORDER
  4. CALCIUM (CALCIUM) [Concomitant]

REACTIONS (12)
  - ARTHRITIS [None]
  - EYE HAEMORRHAGE [None]
  - GASTRIC HAEMORRHAGE [None]
  - GASTROOESOPHAGEAL REFLUX DISEASE [None]
  - HEARING IMPAIRED [None]
  - JOINT SPRAIN [None]
  - MACULAR DEGENERATION [None]
  - MIDDLE EAR EFFUSION [None]
  - OSTEOPOROSIS [None]
  - PAIN IN EXTREMITY [None]
  - ROTATOR CUFF SYNDROME [None]
  - SENSATION OF BLOCK IN EAR [None]
